FAERS Safety Report 8377123-8 (Version None)
Quarter: 2012Q2

REPORT INFORMATION
  Report Type: 
  Country: None (occurrence: None)
  Receive Date: 20120522
  Receipt Date: 20120514
  Transmission Date: 20120825
  Serious: Yes (Death, Hospitalization)
  Sender: FDA-Public Use
  Company Number: CO-ROCHE-1065740

PATIENT
  Sex: Female

DRUGS (1)
  1. HERCEPTIN [Suspect]
     Indication: BREAST CANCER
     Route: 042
     Dates: start: 20111031

REACTIONS (4)
  - BREAST CANCER METASTATIC [None]
  - PLEURAL EFFUSION [None]
  - METASTASES TO LUNG [None]
  - CARDIO-RESPIRATORY ARREST [None]
